FAERS Safety Report 10436388 (Version 1)
Quarter: 2014Q3

REPORT INFORMATION
  Report Type: Spontaneous
  Country: US (occurrence: US)
  Receive Date: 20140908
  Receipt Date: 20140908
  Transmission Date: 20150326
  Serious: No
  Sender: FDA-Public Use
  Company Number: US-PFIZER INC-2014247826

PATIENT
  Sex: Female

DRUGS (1)
  1. NICOTROL [Suspect]
     Active Substance: NICOTINE
     Dosage: UNK
     Dates: start: 201408

REACTIONS (3)
  - Burning sensation [Unknown]
  - Cough [Unknown]
  - Nervousness [Unknown]

NARRATIVE: CASE EVENT DATE: 2014
